FAERS Safety Report 4849036-7 (Version None)
Quarter: 2005Q4

REPORT INFORMATION
  Report Type: 
  Country: None (occurrence: None)
  Receive Date: 20051209
  Receipt Date: 20051128
  Transmission Date: 20060501
  Serious: Yes (Hospitalization, Other)
  Sender: FDA-Public Use
  Company Number: US-JNJFOC-20050803115

PATIENT
  Sex: Female

DRUGS (3)
  1. REMICADE [Suspect]
     Route: 042
  2. REMICADE [Suspect]
     Dosage: SEVERAL DOSES
     Route: 042
  3. REMICADE [Suspect]
     Indication: CROHN'S DISEASE
     Route: 042

REACTIONS (8)
  - CARDIAC VALVE VEGETATION [None]
  - CROHN'S DISEASE [None]
  - ENDOCARDITIS STAPHYLOCOCCAL [None]
  - HEPATIC ENZYME INCREASED [None]
  - ILEOSTOMY [None]
  - IMMUNOSUPPRESSION [None]
  - NEPHROLITHIASIS [None]
  - OSTEOPOROSIS [None]
